FAERS Safety Report 6884372-4 (Version None)
Quarter: 2010Q3

REPORT INFORMATION
  Report Type: 
  Country: None (occurrence: None)
  Receive Date: 20100729
  Receipt Date: 20070823
  Transmission Date: 20110219
  Serious: Yes (Other)
  Sender: FDA-Public Use
  Company Number: US-PFIZER INC-2007052798

PATIENT
  Sex: Female

DRUGS (1)
  1. CELEBREX [Suspect]
     Dates: start: 19990101, end: 20040101

REACTIONS (9)
  - ABDOMINAL DISTENSION [None]
  - BLOOD PRESSURE INCREASED [None]
  - DIARRHOEA [None]
  - FIBROMYALGIA [None]
  - GASTRIC HAEMORRHAGE [None]
  - INCREASED UPPER AIRWAY SECRETION [None]
  - INFLUENZA LIKE ILLNESS [None]
  - NAUSEA [None]
  - SLEEP DISORDER [None]
